FAERS Safety Report 7901440-6 (Version None)
Quarter: 2011Q4

REPORT INFORMATION
  Report Type: 
  Country: None (occurrence: None)
  Receive Date: 20111108
  Receipt Date: 20111108
  Transmission Date: 20120403
  Serious: Yes (Hospitalization)
  Sender: FDA-Public Use
  Company Number: SE-PFIZER INC-2008044292

PATIENT
  Age: 70 Year
  Sex: Male
  Weight: 90 kg

DRUGS (7)
  1. LEVOTHYROXINE SODIUM [Concomitant]
     Indication: HYPOTHYROIDISM
  2. TESTOSTERONE ENANTATE [Concomitant]
     Dosage: 250MG MONTHLY
  3. PROPAVAN [Concomitant]
     Indication: INSOMNIA
     Dosage: AS NEEDED
  4. TESTOSTERONE ENANTATE [Concomitant]
     Indication: HYPOGONADISM
     Dosage: 250MG MONTHLY
     Dates: end: 20080410
  5. CORTISONE ACETATE [Concomitant]
     Indication: BLOOD CORTICOSTERONE DECREASED
  6. SOMATROPIN [Suspect]
     Indication: HYPOPITUITARISM
     Dosage: 0.4 MG, UNK
     Dates: start: 20010410
  7. COZAAR [Concomitant]
     Indication: HYPERTENSION

REACTIONS (1)
  - PROSTATE CANCER [None]
